FAERS Safety Report 13112177 (Version 1)
Quarter: 2017Q1

REPORT INFORMATION
  Report Type: Report from Study
  Country: US (occurrence: US)
  Receive Date: 20170113
  Receipt Date: 20170113
  Transmission Date: 20170428
  Serious: Yes (Other)
  Sender: FDA-Public Use
  Company Number: US-ROCHE-1874365

PATIENT

DRUGS (4)
  1. CPG 7909 [Suspect]
     Active Substance: AGATOLIMOD SODIUM
     Indication: B-CELL LYMPHOMA
     Dosage: COHORT 1: 4 WEEKLY DOSES OF 0.01, 0.04, 0.08, OR 0.16 MG/KG
     Route: 058
  2. CPG 7909 [Suspect]
     Active Substance: AGATOLIMOD SODIUM
     Dosage: COHORT 3
     Route: 058
  3. RITUXIMAB [Suspect]
     Active Substance: RITUXIMAB
     Indication: B-CELL LYMPHOMA
     Route: 042
  4. CPG 7909 [Suspect]
     Active Substance: AGATOLIMOD SODIUM
     Dosage: COHORT 2: WEEKLY DOSES OF 0.04, 0.16, 0.32, OR 0.48 MG/KG
     Route: 042

REACTIONS (4)
  - Dehydration [Unknown]
  - Diarrhoea [Unknown]
  - Lymphopenia [Unknown]
  - Neutropenia [Unknown]
